FAERS Safety Report 13870690 (Version 1)
Quarter: 2017Q3

REPORT INFORMATION
  Report Type: Spontaneous
  Country: HU (occurrence: HU)
  Receive Date: 20170816
  Receipt Date: 20170816
  Transmission Date: 20171127
  Serious: Yes (Hospitalization, Other)
  Sender: FDA-Public Use
  Company Number: HU-ROCHE-1893212

PATIENT
  Age: 70 Year
  Sex: Female
  Weight: 72 kg

DRUGS (4)
  1. ROACTEMRA [Suspect]
     Active Substance: TOCILIZUMAB
     Dosage: DATE OF LAST DOSE PRIOR TO ITCHY SKIN RASH ON THE NOSE, SUBACUTE CUTANEOUS LUPUS ERYTHEMATOSUS AND G
     Route: 058
     Dates: start: 20170217
  2. MEDROL [Concomitant]
     Active Substance: METHYLPREDNISOLONE
     Indication: RHEUMATOID ARTHRITIS
     Route: 048
  3. DICLOFENAC [Concomitant]
     Active Substance: DICLOFENAC
     Dosage: STADA
     Route: 048
  4. ROACTEMRA [Suspect]
     Active Substance: TOCILIZUMAB
     Indication: RHEUMATOID ARTHRITIS
     Dosage: THE MOST RECENT SUBCUTANEOUS TOCILIZUMAB INJECTION BEFORE THE REPORTED EVENT OF BREAST ABSCESS WAS A
     Route: 058
     Dates: start: 20170112

REACTIONS (4)
  - Breast abscess [Recovered/Resolved]
  - Rash generalised [Unknown]
  - Rash pruritic [Unknown]
  - Subacute cutaneous lupus erythematosus [Unknown]

NARRATIVE: CASE EVENT DATE: 20170130
